FAERS Safety Report 5245586-2 (Version None)
Quarter: 2007Q1

REPORT INFORMATION
  Report Type: 
  Country: None (occurrence: None)
  Receive Date: 20070223
  Receipt Date: 20070212
  Transmission Date: 20070707
  Serious: Yes (Other)
  Sender: FDA-Public Use
  Company Number: TR-PFIZER INC-2007011217

PATIENT
  Age: 36 Year
  Sex: Male

DRUGS (1)
  1. VIAGRA [Suspect]
     Dosage: DAILY DOSE:100MG

REACTIONS (9)
  - ARTERIAL OCCLUSIVE DISEASE [None]
  - CHROMATOPSIA [None]
  - OPTIC DISC HAEMORRHAGE [None]
  - OPTIC ISCHAEMIC NEUROPATHY [None]
  - PAPILLOEDEMA [None]
  - RETINAL HAEMORRHAGE [None]
  - RETINAL VASCULAR DISORDER [None]
  - VISUAL ACUITY REDUCED [None]
  - VISUAL FIELD DEFECT [None]
